FAERS Safety Report 21486823 (Version 3)
Quarter: 2022Q4

REPORT INFORMATION
  Report Type: Report from Study
  Country: NL (occurrence: NL)
  Receive Date: 20221020
  Receipt Date: 20221202
  Transmission Date: 20230113
  Serious: Yes (Death, Hospitalization)
  Sender: FDA-Public Use
  Company Number: BE-AMGEN-NLDNI2022132181

PATIENT
  Age: 45 Year
  Sex: Male

DRUGS (7)
  1. OXYCODONE HYDROCHLORIDE [Suspect]
     Active Substance: OXYCODONE HYDROCHLORIDE
     Indication: Product used for unknown indication
     Dosage: 10 DOSAGE FORM, BID
     Route: 048
     Dates: start: 202206
  2. OXYCODONE HYDROCHLORIDE [Suspect]
     Active Substance: OXYCODONE HYDROCHLORIDE
     Dosage: 10 DOSAGE FORM, BID
     Route: 048
     Dates: start: 202206
  3. FERROUS FUMARATE [Suspect]
     Active Substance: FERROUS FUMARATE
     Indication: Product used for unknown indication
     Dosage: 200 DOSAGE FORM, QD
     Route: 048
     Dates: start: 202204
  4. SOTORASIB [Suspect]
     Active Substance: SOTORASIB
     Indication: Non-small cell lung cancer stage IV
     Dosage: 960 MILLIGRAM, QD
     Route: 048
     Dates: start: 20220713
  5. SOTORASIB [Suspect]
     Active Substance: SOTORASIB
     Indication: Non-small cell lung cancer stage IV
     Dosage: 960 MILLIGRAM, QD
     Route: 048
     Dates: start: 20220713
  6. ELIQUIS [Concomitant]
     Active Substance: APIXABAN
     Indication: Product used for unknown indication
     Dosage: 5 DOSAGE FORM, BID
     Route: 048
     Dates: start: 202206
  7. ELIQUIS [Concomitant]
     Active Substance: APIXABAN
     Dosage: 5 DOSAGE FORM, BID
     Dates: start: 202206

REACTIONS (3)
  - Abdominal pain [Fatal]
  - Constipation [Fatal]
  - Hepatic pain [Unknown]

NARRATIVE: CASE EVENT DATE: 20220730
